FAERS Safety Report 5372744-9 (Version None)
Quarter: 2007Q2

REPORT INFORMATION
  Report Type: 
  Country: None (occurrence: None)
  Receive Date: 20070619
  Receipt Date: 20060818
  Transmission Date: 20071010
  Serious: Yes (Other)
  Sender: FDA-Public Use
  Company Number: WAES 0608USA04515

PATIENT
  Age: 60 Year
  Sex: Male

DRUGS (2)
  1. COZAAR [Suspect]
     Indication: HYPERTENSION
     Dosage: 100 MG/DAILY/PO
     Route: 048
     Dates: start: 20040801
  2. THERAPY UNSPECIFIED [Concomitant]

REACTIONS (1)
  - BLOOD POTASSIUM INCREASED [None]
